FAERS Safety Report 4612837-4 (Version None)
Quarter: 2005Q1

REPORT INFORMATION
  Report Type: 
  Country: None (occurrence: None)
  Receive Date: 20050318
  Receipt Date: 20050310
  Transmission Date: 20050727
  Serious: Yes (Hospitalization)
  Sender: FDA-Public Use
  Company Number: US-JNJFOC-20050303270

PATIENT
  Age: 49 Year
  Sex: Female

DRUGS (11)
  1. LEVOFLOXACIN [Suspect]
     Indication: PYELONEPHRITIS
     Route: 042
  2. IMIPRAMINE [Interacting]
     Indication: DRUG USE FOR UNKNOWN INDICATION
  3. FLUOXETINE [Interacting]
     Indication: DRUG USE FOR UNKNOWN INDICATION
  4. CEFTRIAXONE [Concomitant]
     Route: 042
  5. GABAPENTIN [Concomitant]
  6. PROPRANOLOL [Concomitant]
  7. CARISOPRODOL [Concomitant]
  8. MIRTAZAPINE [Concomitant]
  9. LORATADINE [Concomitant]
  10. PSEUDOEPHEDRINE HCL [Concomitant]
  11. FERROUS SULFATE TAB [Concomitant]

REACTIONS (2)
  - DRUG INTERACTION [None]
  - ELECTROCARDIOGRAM QT PROLONGED [None]
